FAERS Safety Report 4996988-0 (Version None)
Quarter: 2006Q2

REPORT INFORMATION
  Report Type: 
  Country: None (occurrence: None)
  Receive Date: 20060509
  Receipt Date: 20060427
  Transmission Date: 20061013
  Serious: Yes (Other)
  Sender: FDA-Public Use
  Company Number: AU-BRISTOL-MYERS SQUIBB COMPANY-13359617

PATIENT
  Sex: Male

DRUGS (2)
  1. TAXOL [Suspect]
     Route: 042
     Dates: start: 20060421
  2. CISPLATIN [Suspect]
     Dates: start: 20060421

REACTIONS (5)
  - CHEST PAIN [None]
  - DRY MOUTH [None]
  - FLANK PAIN [None]
  - RENAL PAIN [None]
  - SWOLLEN TONGUE [None]
